FAERS Safety Report 22048344 (Version 1)
Quarter: 2023Q1

REPORT INFORMATION
  Report Type: Spontaneous
  Country: US (occurrence: US)
  Receive Date: 20230301
  Receipt Date: 20230301
  Transmission Date: 20230418
  Serious: Yes (Hospitalization)
  Sender: FDA-Public Use
  Company Number: US-MYLANLABS-2023M1020406

PATIENT
  Age: 10 Year
  Sex: Female
  Weight: 55 kg

DRUGS (6)
  1. PREDNISONE [Suspect]
     Active Substance: PREDNISONE
     Indication: Prophylaxis
     Dosage: 60 MILLIGRAM, QD
     Route: 065
  2. PREDNISONE [Suspect]
     Active Substance: PREDNISONE
     Indication: Systemic lupus erythematosus
  3. LIDOCAINE [Suspect]
     Active Substance: LIDOCAINE
     Indication: Vulval ulceration
     Dosage: UNK
     Route: 061
  4. LIDOCAINE [Suspect]
     Active Substance: LIDOCAINE
     Indication: Pain
  5. AMOXICILLIN\CLAVULANIC ACID [Concomitant]
     Active Substance: AMOXICILLIN\CLAVULANIC ACID
     Indication: Vulval ulceration
     Dosage: UNK
     Route: 065
  6. AMOXICILLIN\CLAVULANIC ACID [Concomitant]
     Active Substance: AMOXICILLIN\CLAVULANIC ACID
     Indication: Pain

REACTIONS (2)
  - Hyperglycaemic hyperosmolar nonketotic syndrome [Recovering/Resolving]
  - Drug ineffective [Unknown]
